FAERS Safety Report 5826546-7 (Version None)
Quarter: 2008Q3

REPORT INFORMATION
  Report Type: 
  Country: None (occurrence: None)
  Receive Date: 20080729
  Receipt Date: 20080723
  Transmission Date: 20090109
  Serious: Yes (Hospitalization)
  Sender: FDA-Public Use
  Company Number: US-ELI_LILLY_AND_COMPANY-US200806002848

PATIENT
  Sex: Female
  Weight: 102.95 kg

DRUGS (9)
  1. BYETTA [Suspect]
     Indication: TYPE 2 DIABETES MELLITUS
     Dosage: 5 UG, 2/D
     Route: 058
     Dates: start: 20070501, end: 20070601
  2. BYETTA [Suspect]
     Dosage: 10 UG, 2/D
     Route: 058
     Dates: start: 20070601
  3. METFORMIN HCL [Concomitant]
     Indication: DIABETES MELLITUS
     Dosage: 1000 MG, 2/D
     Dates: start: 20070101
  4. NEXIUM [Concomitant]
     Indication: GASTROOESOPHAGEAL REFLUX DISEASE
     Dosage: UNK, DAILY (1/D)
     Dates: start: 20060101
  5. LEVOTHYROX [Concomitant]
     Indication: THYROID DISORDER
     Dosage: 75 UG, DAILY (1/D)
     Dates: start: 20070501
  6. BENICAR [Concomitant]
     Dosage: 40 MG, DAILY (1/D)
     Dates: start: 20070101, end: 20080101
  7. BENICAR [Concomitant]
     Dosage: 20 MG, DAILY (1/D)
     Dates: start: 20080101
  8. HYDROCHLOROTHIAZIDE [Concomitant]
     Dosage: 10 MG, DAILY (1/D)
     Dates: start: 20070101, end: 20080101
  9. AVANDIA [Concomitant]
     Indication: DIABETES MELLITUS
     Dosage: UNK, UNKNOWN
     Dates: end: 20070901

REACTIONS (6)
  - BLOOD GLUCOSE INCREASED [None]
  - CYSTOCELE [None]
  - INCORRECT DOSE ADMINISTERED [None]
  - RECTOCELE [None]
  - UTERINE PROLAPSE [None]
  - WEIGHT DECREASED [None]
